FAERS Safety Report 18514437 (Version 2)
Quarter: 2020Q4

REPORT INFORMATION
  Report Type: Spontaneous
  Country: US (occurrence: US)
  Receive Date: 20201117
  Receipt Date: 20201208
  Transmission Date: 20210114
  Serious: Yes (Other)
  Sender: FDA-Public Use
  Company Number: US-ABBVIE-20K-163-3650005-00

PATIENT
  Age: 19 Year
  Sex: Female
  Weight: 65.83 kg

DRUGS (4)
  1. CYTOXAN [Concomitant]
     Active Substance: CYCLOPHOSPHAMIDE
     Indication: CHEMOTHERAPY
     Dates: start: 202010
  2. LUPRON [Suspect]
     Active Substance: LEUPROLIDE ACETATE
     Indication: REPRODUCTIVE SYSTEM DISORDER PROPHYLAXIS
     Dosage: POSSBILY RETURNING TO 3.75 MG
     Route: 030
     Dates: start: 202010, end: 202010
  3. LUPRON DEPOT [Suspect]
     Active Substance: LEUPROLIDE ACETATE
     Route: 030
     Dates: start: 2020
  4. LUPRON DEPOT [Suspect]
     Active Substance: LEUPROLIDE ACETATE
     Indication: REPRODUCTIVE SYSTEM DISORDER PROPHYLAXIS
     Route: 030
     Dates: start: 20200929, end: 202010

REACTIONS (1)
  - Hot flush [Not Recovered/Not Resolved]

NARRATIVE: CASE EVENT DATE: 202009
